FAERS Safety Report 5533769-3 (Version None)
Quarter: 2007Q4

REPORT INFORMATION
  Report Type: 
  Country: None (occurrence: None)
  Receive Date: 20071120
  Receipt Date: 20070806
  Transmission Date: 20080405
  Serious: No
  Sender: FDA-Public Use
  Company Number: WAES 0707USA02287

PATIENT
  Age: 74 Year
  Sex: Female
  Weight: 58.514 kg

DRUGS (2)
  1. JANUVIA [Suspect]
     Indication: DIABETES MELLITUS
     Dosage: 100 MG/DAILY/PO
     Route: 048
     Dates: start: 20070703, end: 20070713
  2. INSULIN, BIPHASIC ISOPHANE [Concomitant]

REACTIONS (3)
  - NAUSEA [None]
  - PALPITATIONS [None]
  - STOMACH DISCOMFORT [None]
